FAERS Safety Report 19352777 (Version 1)
Quarter: 2021Q2

REPORT INFORMATION
  Report Type: Spontaneous
  Country: IN (occurrence: IN)
  Receive Date: 20210601
  Receipt Date: 20210601
  Transmission Date: 20210717
  Serious: Yes (Hospitalization, Other)
  Sender: FDA-Public Use
  Company Number: IN-SA-2021SA175715

PATIENT
  Age: 28 Year
  Sex: Male

DRUGS (7)
  1. MANNITOL. [Concomitant]
     Active Substance: MANNITOL
     Indication: BRAIN OEDEMA
     Dosage: 150 ML, TID
     Route: 042
  2. ENOXAPARIN SODIUM. [Suspect]
     Active Substance: ENOXAPARIN SODIUM
     Indication: CEREBRAL VENOUS SINUS THROMBOSIS
     Dosage: 60 MG, BID
     Route: 058
  3. DIAMOX SEQUELS [Concomitant]
     Active Substance: ACETAZOLAMIDE
     Indication: BRAIN OEDEMA
     Dosage: 500 MG, TID
     Route: 048
  4. ENOXAPARIN SODIUM. [Suspect]
     Active Substance: ENOXAPARIN SODIUM
     Indication: POLYCYTHAEMIA VERA
  5. DILANTIN [Concomitant]
     Active Substance: PHENYTOIN
     Dosage: 300 MG, HS
     Route: 042
  6. ENOXAPARIN SODIUM. [Suspect]
     Active Substance: ENOXAPARIN SODIUM
     Indication: SPLENIC INFARCTION
  7. DILANTIN [Concomitant]
     Active Substance: PHENYTOIN
     Dosage: 20 MG/KG LOADING DOSE
     Route: 042

REACTIONS (12)
  - Brain oedema [Recovering/Resolving]
  - Cerebral mass effect [Recovering/Resolving]
  - Dysarthria [Recovering/Resolving]
  - Thrombocytopenia [Recovering/Resolving]
  - Headache [Recovering/Resolving]
  - Condition aggravated [Recovering/Resolving]
  - Cerebral haemorrhage [Recovering/Resolving]
  - Somnolence [Recovering/Resolving]
  - Muscular weakness [Recovering/Resolving]
  - Coma scale abnormal [Recovering/Resolving]
  - Altered state of consciousness [Recovering/Resolving]
  - Pupils unequal [Recovering/Resolving]
